FAERS Safety Report 25804672 (Version 1)
Quarter: 2025Q3

REPORT INFORMATION
  Report Type: Spontaneous
  Country: EU (occurrence: EU)
  Receive Date: 20250915
  Receipt Date: 20250915
  Transmission Date: 20251021
  Serious: Yes (Death, Other)
  Sender: SERVIER
  Company Number: EU-SERVIER-S25013483

PATIENT

DRUGS (2)
  1. TIBSOVO [Suspect]
     Active Substance: IVOSIDENIB
     Indication: Acute myeloid leukaemia
     Dosage: 500 MG, QD
     Route: 048
     Dates: start: 202503, end: 20250704
  2. AZACITIDINE [Concomitant]
     Active Substance: AZACITIDINE
     Indication: Acute myeloid leukaemia
     Route: 065
     Dates: start: 202503, end: 20250704

REACTIONS (2)
  - General physical health deterioration [Fatal]
  - Paralysis [Unknown]

NARRATIVE: CASE EVENT DATE: 20250101
